FAERS Safety Report 16777456 (Version 1)
Quarter: 2019Q3

REPORT INFORMATION
  Report Type: Report from Study
  Country: BE (occurrence: BE)
  Receive Date: 20190905
  Receipt Date: 20190905
  Transmission Date: 20191005
  Serious: Yes (Death, Hospitalization, Other)
  Sender: FDA-Public Use
  Company Number: BE-MYLANLABS-2019M1083213

PATIENT
  Age: 77 Year
  Sex: Male
  Weight: 87 kg

DRUGS (5)
  1. PACLITAXEL. [Suspect]
     Active Substance: PACLITAXEL
     Indication: SQUAMOUS CELL CARCINOMA OF LUNG
     Dosage: DOSE AND TOTAL DAILY DOSE 330 MG, FREQUENCY UNKNOWN
     Route: 042
     Dates: start: 20190314, end: 20190314
  2. KEYTRUDA [Suspect]
     Active Substance: PEMBROLIZUMAB
     Indication: SQUAMOUS CELL CARCINOMA OF LUNG
     Dosage: 200 MILLIGRAM, ONCE
     Route: 065
     Dates: start: 20190314, end: 20190314
  3. NEULASTA [Concomitant]
     Active Substance: PEGFILGRASTIM
     Indication: PROPHYLAXIS
     Dosage: 6 MILLIGRAM DAILY, FREQUENCY: UNKNOWN
     Route: 042
     Dates: start: 20190315, end: 20190315
  4. DEXAMETHASONE. [Suspect]
     Active Substance: DEXAMETHASONE
     Indication: PREMEDICATION
     Dosage: DOSE AND TOTAL DAILY DOSE: 20 MILLIGRAM, FREQUENCY: UNKNOWN
     Route: 048
     Dates: start: 20190313, end: 20190314
  5. CARBOPLATIN. [Suspect]
     Active Substance: CARBOPLATIN
     Indication: SQUAMOUS CELL CARCINOMA OF LUNG
     Dosage: DOSE AND TOTAL DAILY DOSE: 460 MG, FREQUENCY: UNKNOWN
     Route: 042
     Dates: start: 20190314, end: 20190314

REACTIONS (2)
  - Death [Fatal]
  - Gastrointestinal haemorrhage [Fatal]

NARRATIVE: CASE EVENT DATE: 20190321
